FAERS Safety Report 6295861-8 (Version None)
Quarter: 2009Q3

REPORT INFORMATION
  Report Type: 
  Country: None (occurrence: None)
  Receive Date: 20090804
  Receipt Date: 20090724
  Transmission Date: 20100115
  Serious: Yes (Other)
  Sender: FDA-Public Use
  Company Number: US-ROCHE-645213

PATIENT
  Sex: Female

DRUGS (1)
  1. BONIVA [Suspect]
     Indication: OSTEOPOROSIS
     Dosage: OTHER INDICATION: OSTEOPENIA
     Route: 048
     Dates: start: 20070101, end: 20070101

REACTIONS (3)
  - ABDOMINAL PAIN UPPER [None]
  - RESORPTION BONE INCREASED [None]
  - TOOTH DISORDER [None]
